FAERS Safety Report 7210727-4 (Version None)
Quarter: 2011Q1

REPORT INFORMATION
  Report Type: 
  Country: None (occurrence: None)
  Receive Date: 20110105
  Receipt Date: 20101229
  Transmission Date: 20110831
  Serious: No
  Sender: FDA-Public Use
  Company Number: US-PFIZER INC-2009190309

PATIENT
  Sex: Female
  Weight: 84.8 kg

DRUGS (10)
  1. GEMFIBROZIL [Concomitant]
     Dosage: UNK
  2. CETIRIZINE [Concomitant]
     Dosage: UNK
  3. CODEINE [Concomitant]
     Dosage: UNK
  4. NEURONTIN [Suspect]
     Indication: DEPRESSION
     Dosage: 400 MG/DAY
     Dates: start: 20060101, end: 20090323
  5. NEURONTIN [Suspect]
     Dosage: 400 MG, 4X/DAY
  6. LEVOTHYROXINE [Concomitant]
     Dosage: UNK
  7. NEURONTIN [Suspect]
     Dosage: 300 MG, 2X/DAY
  8. BACLOFEN [Concomitant]
     Dosage: UNK
  9. ACETAMINOPHEN [Concomitant]
     Dosage: UNK
  10. SERTRALINE [Concomitant]
     Dosage: UNK

REACTIONS (7)
  - HYPERHIDROSIS [None]
  - INSOMNIA [None]
  - NAUSEA [None]
  - PAIN [None]
  - ABDOMINAL PAIN UPPER [None]
  - NIGHT SWEATS [None]
  - ANXIETY [None]
